FAERS Safety Report 25456253 (Version 1)
Quarter: 2025Q2

REPORT INFORMATION
  Report Type: Spontaneous
  Country: FR (occurrence: FR)
  Receive Date: 20250619
  Receipt Date: 20250619
  Transmission Date: 20250717
  Serious: Yes (Other)
  Sender: ALEXION PHARMACEUTICALS
  Company Number: FR-AstraZeneca-CH-00890593A

PATIENT
  Weight: 76 kg

DRUGS (1)
  1. TAGRISSO [Suspect]
     Active Substance: OSIMERTINIB
     Indication: Bronchial carcinoma
     Dosage: 80 MILLIGRAM, QD

REACTIONS (10)
  - Pulmonary mass [Unknown]
  - Paraesthesia [Unknown]
  - Fatigue [Unknown]
  - Pericardial effusion [Unknown]
  - Dyspnoea [Unknown]
  - Decreased activity [Unknown]
  - Diarrhoea [Unknown]
  - Pruritus [Unknown]
  - Oropharyngeal pain [Unknown]
  - Amnesia [Unknown]
